FAERS Safety Report 9323009 (Version 1)
Quarter: 2013Q2

REPORT INFORMATION
  Report Type: Report from Study
  Country: AR (occurrence: AR)
  Receive Date: 20130603
  Receipt Date: 20130603
  Transmission Date: 20140414
  Serious: Yes (Other)
  Sender: FDA-Public Use
  Company Number: AR-ROCHE-1229788

PATIENT
  Age: 89 Year
  Sex: Female

DRUGS (1)
  1. LUCENTIS [Suspect]
     Indication: MACULOPATHY
     Route: 050
     Dates: start: 2012

REACTIONS (4)
  - Respiratory rate increased [Unknown]
  - Cardiac disorder [Unknown]
  - Malaise [Unknown]
  - Agitation [Not Recovered/Not Resolved]
